FAERS Safety Report 20406659 (Version 1)
Quarter: 2022Q1

REPORT INFORMATION
  Report Type: Spontaneous
  Country: NL (occurrence: NL)
  Receive Date: 20220131
  Receipt Date: 20220131
  Transmission Date: 20220423
  Serious: Yes (Hospitalization)
  Sender: FDA-Public Use
  Company Number: None

PATIENT
  Age: 11 Week
  Sex: Male
  Weight: 6 kg

DRUGS (6)
  1. RISPERIDONE [Suspect]
     Active Substance: RISPERIDONE
     Indication: Delirium
     Dosage: 0.12 MG, QD (0,12MG (0,02MG/KG X 6KG) ORAAL 1X PER DAG)
     Route: 065
     Dates: start: 20211208, end: 20211215
  2. RISPERIDONE [Suspect]
     Active Substance: RISPERIDONE
     Indication: Withdrawal syndrome
  3. METHADONE [Suspect]
     Active Substance: METHADONE HYDROCHLORIDE
     Indication: Withdrawal syndrome
     Dosage: 0.48 MG, Q6H (DRANK 1 MG/ML)
     Route: 065
     Dates: start: 20211204
  4. LORAZEPAM [Suspect]
     Active Substance: LORAZEPAM
     Indication: Withdrawal syndrome
     Dosage: 0.5 MG, Q12H (0,5 MG 2 DD PO)
     Route: 065
     Dates: start: 20211204
  5. CLONIDINE [Concomitant]
     Active Substance: CLONIDINE
     Indication: Product used for unknown indication
     Dosage: UNK (DRANK, 0,05 MG/ML (MILLIGRAM PER MILLILITER))
     Route: 065
  6. ACETAMINOPHEN [Concomitant]
     Active Substance: ACETAMINOPHEN
     Indication: Product used for unknown indication
     Dosage: UNK (ZETPIL, 120 MG (MILLIGRAM)
     Route: 065

REACTIONS (1)
  - Hypotonia [Recovering/Resolving]

NARRATIVE: CASE EVENT DATE: 20211213
